FAERS Safety Report 9339392 (Version 1)
Quarter: 2013Q2

REPORT INFORMATION
  Report Type: Other
  Country: US (occurrence: US)
  Receive Date: 20130610
  Receipt Date: 20130610
  Transmission Date: 20140414
  Serious: Yes (Other)
  Sender: FDA-Public Use
  Company Number: US-NAPPMUNDI-GBR-2013-0014167

PATIENT
  Age: 21 Year
  Sex: Female

DRUGS (3)
  1. HYDROMORPHONE HCL INJECTABLE [Suspect]
     Indication: PERIOPERATIVE ANALGESIA
     Dosage: 0.4 MG, UNK
     Route: 042
  2. HYDROMORPHONE HCL INJECTABLE [Suspect]
     Indication: POSTOPERATIVE ANALGESIA
     Dosage: 0.6 MG, UNK
     Route: 042
  3. FENTANYL [Suspect]
     Indication: PERIOPERATIVE ANALGESIA
     Dosage: 200 MCG, UNK
     Route: 042

REACTIONS (1)
  - Delirium [Recovered/Resolved]
